FAERS Safety Report 15207181 (Version 1)
Quarter: 2018Q3

REPORT INFORMATION
  Report Type: Report from Study
  Country: US (occurrence: US)
  Receive Date: 20180727
  Receipt Date: 20180727
  Transmission Date: 20181010
  Serious: Yes (Death, Other)
  Sender: FDA-Public Use
  Company Number: US-REGENERON PHARMACEUTICALS, INC.-2018-27399

PATIENT

DRUGS (50)
  1. EYLEA [Suspect]
     Active Substance: AFLIBERCEPT
     Dosage: OD
     Dates: start: 20140711, end: 20140711
  2. EYLEA [Suspect]
     Active Substance: AFLIBERCEPT
     Dosage: OD
     Dates: start: 20141105, end: 20141105
  3. EYLEA [Suspect]
     Active Substance: AFLIBERCEPT
     Dosage: OS
     Dates: start: 20150518, end: 20150518
  4. EYLEA [Suspect]
     Active Substance: AFLIBERCEPT
     Dosage: OS
     Dates: start: 20150914, end: 20150914
  5. EYLEA [Suspect]
     Active Substance: AFLIBERCEPT
     Dosage: OS
     Dates: start: 20160707, end: 20160707
  6. EYLEA [Suspect]
     Active Substance: AFLIBERCEPT
     Dosage: OS
     Dates: start: 20170313, end: 20170313
  7. EYLEA [Suspect]
     Active Substance: AFLIBERCEPT
     Dosage: OD
     Dates: start: 20130610, end: 20130610
  8. EYLEA [Suspect]
     Active Substance: AFLIBERCEPT
     Dosage: OS
     Dates: start: 20150713, end: 20150713
  9. EYLEA [Suspect]
     Active Substance: AFLIBERCEPT
     Dosage: OD
     Dates: start: 20150831, end: 20150831
  10. EYLEA [Suspect]
     Active Substance: AFLIBERCEPT
     Dosage: OS
     Dates: start: 20160505, end: 20160505
  11. EYLEA [Suspect]
     Active Substance: AFLIBERCEPT
     Dosage: OS
     Dates: start: 20160908, end: 20160908
  12. EYLEA [Suspect]
     Active Substance: AFLIBERCEPT
     Dosage: OD
     Dates: start: 20140303, end: 20140303
  13. EYLEA [Suspect]
     Active Substance: AFLIBERCEPT
     Dosage: OD
     Dates: start: 20140908, end: 20140908
  14. EYLEA [Suspect]
     Active Substance: AFLIBERCEPT
     Dosage: OS
     Dates: start: 20150107, end: 20150107
  15. EYLEA [Suspect]
     Active Substance: AFLIBERCEPT
     Dosage: OD
     Dates: start: 20160622, end: 20160622
  16. EYLEA [Suspect]
     Active Substance: AFLIBERCEPT
     Dosage: OS
     Dates: start: 20130614, end: 20130614
  17. EYLEA [Suspect]
     Active Substance: AFLIBERCEPT
     Dosage: OS
     Dates: start: 20130813, end: 20130813
  18. EYLEA [Suspect]
     Active Substance: AFLIBERCEPT
     Dosage: OD
     Dates: start: 20131206, end: 20131206
  19. EYLEA [Suspect]
     Active Substance: AFLIBERCEPT
     Dosage: OS
     Dates: start: 20140716, end: 20140716
  20. EYLEA [Suspect]
     Active Substance: AFLIBERCEPT
     Dosage: OD
     Dates: start: 20151102, end: 20151102
  21. EYLEA [Suspect]
     Active Substance: AFLIBERCEPT
     Dosage: OD
     Dates: start: 20161205, end: 20161205
  22. EYLEA [Suspect]
     Active Substance: AFLIBERCEPT
     Dosage: OS
     Dates: start: 20140910, end: 20140910
  23. EYLEA [Suspect]
     Active Substance: AFLIBERCEPT
     Dosage: OD
     Dates: start: 20160818, end: 20160818
  24. EYLEA [Suspect]
     Active Substance: AFLIBERCEPT
     Dosage: OS
     Dates: start: 20130405, end: 20130405
  25. EYLEA [Suspect]
     Active Substance: AFLIBERCEPT
     Dosage: OD
     Dates: start: 20130806, end: 20130806
  26. EYLEA [Suspect]
     Active Substance: AFLIBERCEPT
     Dosage: OD
     Dates: start: 20131105, end: 20131105
  27. EYLEA [Suspect]
     Active Substance: AFLIBERCEPT
     Dosage: OD
     Dates: start: 20150304, end: 20150304
  28. EYLEA [Suspect]
     Active Substance: AFLIBERCEPT
     Dosage: OS
     Dates: start: 20151116, end: 20151116
  29. EYLEA [Suspect]
     Active Substance: AFLIBERCEPT
     Dosage: OD
     Dates: start: 20160303, end: 20160303
  30. EYLEA [Suspect]
     Active Substance: AFLIBERCEPT
     Dosage: OD
     Dates: start: 20161006, end: 20161006
  31. EYLEA [Suspect]
     Active Substance: AFLIBERCEPT
     Indication: PRODUCT USED FOR UNKNOWN INDICATION
     Dosage: OD FIRST DOSE, OS LAST DOSE
     Dates: start: 20130403, end: 20180405
  32. EYLEA [Suspect]
     Active Substance: AFLIBERCEPT
     Dosage: OS
     Dates: start: 20131106, end: 20131106
  33. EYLEA [Suspect]
     Active Substance: AFLIBERCEPT
     Dosage: OD
     Dates: start: 20140106, end: 20140106
  34. EYLEA [Suspect]
     Active Substance: AFLIBERCEPT
     Dosage: OS
     Dates: start: 20140317, end: 20140317
  35. EYLEA [Suspect]
     Active Substance: AFLIBERCEPT
     Dosage: OD
     Dates: start: 20140505, end: 20140505
  36. EYLEA [Suspect]
     Active Substance: AFLIBERCEPT
     Dosage: OS
     Dates: start: 20141107, end: 20141107
  37. EYLEA [Suspect]
     Active Substance: AFLIBERCEPT
     Dosage: OD
     Dates: start: 20150105, end: 20150105
  38. EYLEA [Suspect]
     Active Substance: AFLIBERCEPT
     Dosage: OS
     Dates: start: 20150316, end: 20150316
  39. EYLEA [Suspect]
     Active Substance: AFLIBERCEPT
     Dosage: OS
     Dates: start: 20170109, end: 20170109
  40. EYLEA [Suspect]
     Active Substance: AFLIBERCEPT
     Dosage: OD
     Dates: start: 20170206, end: 20170206
  41. EYLEA [Suspect]
     Active Substance: AFLIBERCEPT
     Dosage: OS
     Dates: start: 20171011, end: 20171011
  42. EYLEA [Suspect]
     Active Substance: AFLIBERCEPT
     Dosage: OD
     Dates: start: 20150511, end: 20150511
  43. EYLEA [Suspect]
     Active Substance: AFLIBERCEPT
     Dosage: OD
     Dates: start: 20150706, end: 20150706
  44. EYLEA [Suspect]
     Active Substance: AFLIBERCEPT
     Dosage: OD
     Dates: start: 20160104, end: 20160104
  45. EYLEA [Suspect]
     Active Substance: AFLIBERCEPT
     Dosage: OS
     Dates: start: 20160119, end: 20160119
  46. EYLEA [Suspect]
     Active Substance: AFLIBERCEPT
     Dosage: OS
     Dates: start: 20160317, end: 20160317
  47. EYLEA [Suspect]
     Active Substance: AFLIBERCEPT
     Dosage: OS
     Dates: start: 20161103, end: 20161103
  48. EYLEA [Suspect]
     Active Substance: AFLIBERCEPT
     Dosage: OS
     Dates: start: 20171130, end: 20171130
  49. EYLEA [Suspect]
     Active Substance: AFLIBERCEPT
     Dosage: OS
     Dates: start: 20140113, end: 20140113
  50. EYLEA [Suspect]
     Active Substance: AFLIBERCEPT
     Dosage: OS
     Dates: start: 20140512, end: 20140512

REACTIONS (1)
  - Death [Fatal]
